FAERS Safety Report 17363957 (Version 1)
Quarter: 2020Q1

REPORT INFORMATION
  Report Type: Spontaneous
  Country: SG (occurrence: SG)
  Receive Date: 20200203
  Receipt Date: 20200203
  Transmission Date: 20200409
  Serious: Yes (Other)
  Sender: FDA-Public Use
  Company Number: SG-B.I. PHARMACEUTICALS,INC./RIDGEFIELD-2020-BI-005579

PATIENT
  Age: 31 Year
  Sex: Male

DRUGS (1)
  1. JARDIANCE [Suspect]
     Active Substance: EMPAGLIFLOZIN
     Indication: PRODUCT USED FOR UNKNOWN INDICATION
     Route: 048

REACTIONS (1)
  - Ocular hyperaemia [Unknown]

NARRATIVE: CASE EVENT DATE: 20191220
